FAERS Safety Report 4662546-0 (Version None)
Quarter: 2005Q2

REPORT INFORMATION
  Report Type: 
  Country: None (occurrence: None)
  Receive Date: 20050512
  Receipt Date: 20050428
  Transmission Date: 20051028
  Serious: Yes (Hospitalization)
  Sender: FDA-Public Use
  Company Number: DEU-2005-0001373

PATIENT
  Age: 8 Year
  Sex: Male
  Weight: 35 kg

DRUGS (2)
  1. BETASEPTIC MUNDIPHARMA (ISOPROPANOL, ETHANOL, POVIDONE-IODINE) TOPICAL [Suspect]
     Indication: PREOPERATIVE CARE
     Dosage: SINGLE, TOPICAL
     Route: 061
     Dates: start: 20050324, end: 20050324
  2. ANAESTHETICS [Concomitant]

REACTIONS (4)
  - BURNS SECOND DEGREE [None]
  - CHEMICAL BURN OF SKIN [None]
  - SCAR [None]
  - SKIN DISCOLOURATION [None]
